FAERS Safety Report 5557472-9 (Version None)
Quarter: 2007Q4

REPORT INFORMATION
  Report Type: 
  Country: None (occurrence: None)
  Receive Date: 20071214
  Receipt Date: 20071204
  Transmission Date: 20080405
  Serious: Yes (Death, Hospitalization, Disabling)
  Sender: FDA-Public Use
  Company Number: US-JNJFOC-20071202006

PATIENT
  Sex: Female

DRUGS (11)
  1. LEVAQUIN [Suspect]
     Indication: DRUG USE FOR UNKNOWN INDICATION
     Route: 065
  2. REVLIMID [Suspect]
     Indication: MULTIPLE MYELOMA
     Route: 048
  3. DECADRON [Suspect]
     Indication: MULTIPLE MYELOMA
     Route: 065
  4. CALCIUM [Concomitant]
     Route: 065
  5. M.V.I. [Concomitant]
     Route: 065
  6. WARFARIN SODIUM [Concomitant]
     Indication: INTERNATIONAL NORMALISED RATIO
     Route: 065
  7. VITAMIN K [Concomitant]
     Route: 065
  8. LISINOPRIL [Concomitant]
     Route: 065
  9. DIGOXIN [Concomitant]
     Route: 065
  10. COMPAZINE [Concomitant]
     Route: 065
  11. CARDIZEM [Concomitant]
     Route: 065

REACTIONS (3)
  - ASTHENIA [None]
  - FATIGUE [None]
  - RASH [None]
